FAERS Safety Report 22825236 (Version 5)
Quarter: 2024Q1

REPORT INFORMATION
  Report Type: Spontaneous
  Country: US (occurrence: US)
  Receive Date: 20230816
  Receipt Date: 20240108
  Transmission Date: 20240409
  Serious: No
  Sender: FDA-Public Use
  Company Number: US-BIOGEN-2022BI01152929

PATIENT
  Age: 52 Year
  Sex: Female

DRUGS (20)
  1. TECFIDERA [Suspect]
     Active Substance: DIMETHYL FUMARATE
     Indication: Multiple sclerosis
     Dosage: MD PRESCRIBED 120 MG TWICE A DAY FOR 7 DAYS (01-SE-2022), THEN 240 MG TWICE A DAY THEREAFTER (08-...
     Route: 050
     Dates: start: 20220901
  2. TECFIDERA [Suspect]
     Active Substance: DIMETHYL FUMARATE
     Dosage: MD PRESCRIBED 120 MG TWICE A DAY FOR 7 DAYS (01-SE-2022), THEN 240 MG TWICE A DAY THEREAFTER (08-...
     Route: 050
     Dates: start: 20220908
  3. TECFIDERA [Suspect]
     Active Substance: DIMETHYL FUMARATE
     Route: 050
     Dates: start: 202211
  4. INDOCIN [Suspect]
     Active Substance: INDOMETHACIN
     Indication: Renal disorder
     Route: 050
  5. ALBUTEROL SU [Concomitant]
     Dosage: AER 108 (90
     Route: 050
  6. BREO ELLIPTA [Concomitant]
     Active Substance: FLUTICASONE FUROATE\VILANTEROL TRIFENATATE
     Dosage: 100-25MC
     Route: 050
  7. CARAFATE [Concomitant]
     Active Substance: SUCRALFATE
     Route: 050
  8. CARVEDILOL [Concomitant]
     Active Substance: CARVEDILOL
     Route: 050
  9. CLOPIDOGREL [Concomitant]
     Active Substance: CLOPIDOGREL BISULFATE
     Route: 050
  10. DICLOFENAC [Concomitant]
     Active Substance: DICLOFENAC
     Route: 050
  11. GABAPENTIN [Concomitant]
     Active Substance: GABAPENTIN
     Route: 050
  12. HYDROXYZINE [Concomitant]
     Active Substance: HYDROXYZINE HYDROCHLORIDE
     Route: 050
  13. IPRATROPIUM [Concomitant]
     Active Substance: IPRATROPIUM
     Dosage: 0.5-2.5
     Route: 050
  14. ISOSORBIDE [Concomitant]
     Active Substance: ISOSORBIDE
     Route: 050
  15. JARDIANCE [Concomitant]
     Active Substance: EMPAGLIFLOZIN
     Route: 050
  16. LANTUS [Concomitant]
     Active Substance: INSULIN GLARGINE
     Dosage: SOL 1OO UNIT/ML
     Route: 050
  17. NOVOLOG [Concomitant]
     Active Substance: INSULIN ASPART
     Dosage: 1OO UNIT/
     Route: 050
  18. TRULICITY [Concomitant]
     Active Substance: DULAGLUTIDE
     Dosage: 4.5MG/0.5ML
     Route: 050
  19. XANAX [Concomitant]
     Active Substance: ALPRAZOLAM
     Route: 050
  20. ZETIA [Concomitant]
     Active Substance: EZETIMIBE
     Route: 050

REACTIONS (5)
  - Multiple sclerosis relapse [Not Recovered/Not Resolved]
  - Renal disorder [Not Recovered/Not Resolved]
  - Arthritis [Not Recovered/Not Resolved]
  - Gastrooesophageal reflux disease [Unknown]
  - Hot flush [Unknown]

NARRATIVE: CASE EVENT DATE: 20220901
